FAERS Safety Report 15878040 (Version 1)
Quarter: 2019Q1

REPORT INFORMATION
  Report Type: Report from Study
  Country: US (occurrence: US)
  Receive Date: 20190128
  Receipt Date: 20190128
  Transmission Date: 20190417
  Serious: Yes (Hospitalization, Other)
  Sender: FDA-Public Use
  Company Number: US-GILEAD-2019-0386070

PATIENT
  Age: 73 Year
  Sex: Female
  Weight: 63.49 kg

DRUGS (14)
  1. BUMEX [Concomitant]
     Active Substance: BUMETANIDE
  2. ADCIRCA [Concomitant]
     Active Substance: TADALAFIL
  3. OXYGEN. [Concomitant]
     Active Substance: OXYGEN
  4. ROSUVASTATIN CALCIUM. [Concomitant]
     Active Substance: ROSUVASTATIN CALCIUM
  5. IRON [Concomitant]
     Active Substance: IRON
  6. PROTONIX [OMEPRAZOLE] [Concomitant]
     Active Substance: OMEPRAZOLE
  7. MUCINEX [Concomitant]
     Active Substance: GUAIFENESIN
  8. AMBRISENTAN [Suspect]
     Active Substance: AMBRISENTAN
     Indication: PULMONARY ARTERIAL HYPERTENSION
     Dosage: 10 MG, QD
     Route: 048
     Dates: start: 20150504
  9. AMBRISENTAN [Suspect]
     Active Substance: AMBRISENTAN
     Dosage: 5 MG
     Route: 065
     Dates: start: 20190120
  10. METOPROLOL SUCCINATE. [Concomitant]
     Active Substance: METOPROLOL SUCCINATE
  11. COLACE [Concomitant]
     Active Substance: DOCUSATE SODIUM
  12. ASPIRIN (E.C.) [Concomitant]
     Active Substance: ASPIRIN
  13. AMLODIPINE BESYLATE AND BENAZEPRIL HYDROCHLORIDE [Concomitant]
     Active Substance: AMLODIPINE BESYLATE\BENAZEPRIL HYDROCHLORIDE
  14. MYCOPHENOLATE MOFETIL. [Concomitant]
     Active Substance: MYCOPHENOLATE MOFETIL

REACTIONS (3)
  - Product use issue [Unknown]
  - Weight decreased [Unknown]
  - Gastrointestinal haemorrhage [Recovered/Resolved]

NARRATIVE: CASE EVENT DATE: 20190121
